FAERS Safety Report 7741207-5 (Version None)
Quarter: 2011Q3

REPORT INFORMATION
  Report Type: 
  Country: None (occurrence: None)
  Receive Date: 20110909
  Receipt Date: 20110902
  Transmission Date: 20111222
  Serious: Yes (Disabling)
  Sender: FDA-Public Use
  Company Number: US-BAYER-2011-081859

PATIENT
  Age: 29 Year
  Sex: Female

DRUGS (2)
  1. CORTICOSTEROID NOS [Concomitant]
     Indication: PNEUMONIA
     Dosage: UNK
     Dates: start: 20110801
  2. AVELOX [Suspect]
     Indication: PNEUMONIA
     Dosage: 400 MG, QD
     Route: 048
     Dates: start: 20110801

REACTIONS (3)
  - TENDONITIS [None]
  - PAIN IN EXTREMITY [None]
  - TENDON PAIN [None]
